FAERS Safety Report 8177010-4 (Version None)
Quarter: 2012Q1

REPORT INFORMATION
  Report Type: 
  Country: None (occurrence: None)
  Receive Date: 20120301
  Receipt Date: 20120222
  Transmission Date: 20120608
  Serious: Yes (Hospitalization)
  Sender: FDA-Public Use
  Company Number: DE-JNJFOC-20111211994

PATIENT
  Sex: Male
  Weight: 79 kg

DRUGS (9)
  1. PROPRANOLOL [Interacting]
     Indication: HAEMORRHAGE
     Route: 065
  2. PANTOPRAZOLE [Interacting]
     Indication: HAEMORRHAGE
     Route: 065
  3. COPEGUS [Concomitant]
     Indication: HEPATITIS C
     Route: 048
  4. PEGASYS [Concomitant]
     Indication: HEPATITIS C
     Route: 048
  5. RISPERIDONE [Interacting]
     Indication: SCHIZOPHRENIA
     Route: 048
  6. INCIVO [Suspect]
     Indication: HEPATITIS C
     Route: 048
  7. SORMODREN [Interacting]
     Indication: SCHIZOPHRENIA
     Route: 065
  8. SPIRONOLACTONE [Interacting]
     Indication: PRODUCT USED FOR UNKNOWN INDICATION
     Route: 065
  9. ZOPICLON [Interacting]
     Indication: PRODUCT USED FOR UNKNOWN INDICATION
     Route: 065

REACTIONS (6)
  - BRONCHOPNEUMONIA [None]
  - DRUG INTERACTION [None]
  - DEHYDRATION [None]
  - URINARY TRACT INFECTION [None]
  - VOMITING [None]
  - GENERAL PHYSICAL HEALTH DETERIORATION [None]
